FAERS Safety Report 9620003 (Version 1)
Quarter: 2013Q4

REPORT INFORMATION
  Report Type: Spontaneous
  Country: US (occurrence: US)
  Receive Date: 20131014
  Receipt Date: 20131014
  Transmission Date: 20140711
  Serious: No
  Sender: FDA-Public Use
  Company Number: US-PFIZER INC-2013289826

PATIENT
  Age: 68 Year
  Sex: Female

DRUGS (1)
  1. PREMARIN [Suspect]
     Indication: INADEQUATE LUBRICATION
     Dosage: UNK
     Route: 048

REACTIONS (1)
  - Drug ineffective [Unknown]
